FAERS Safety Report 13074211 (Version 1)
Quarter: 2016Q4

REPORT INFORMATION
  Report Type: Spontaneous
  Country: DE (occurrence: DE)
  Receive Date: 20161230
  Receipt Date: 20161230
  Transmission Date: 20170207
  Serious: Yes (Other)
  Sender: FDA-Public Use
  Company Number: DE-BRISTOL-MYERS SQUIBB COMPANY-BMS-2016-109901

PATIENT
  Sex: Male

DRUGS (4)
  1. YERVOY [Suspect]
     Active Substance: IPILIMUMAB
     Indication: METASTATIC MALIGNANT MELANOMA
     Dosage: 1 DF, UNK
     Route: 042
     Dates: start: 201607
  2. OPDIVO [Suspect]
     Active Substance: NIVOLUMAB
     Indication: METASTATIC MALIGNANT MELANOMA
     Dosage: 1 DF, UNK
     Route: 042
     Dates: start: 201607
  3. YERVOY [Suspect]
     Active Substance: IPILIMUMAB
     Indication: METASTASES TO LIVER
     Route: 065
  4. OPDIVO [Suspect]
     Active Substance: NIVOLUMAB
     Indication: METASTASES TO LIVER
     Route: 065

REACTIONS (1)
  - Abasia [Unknown]

NARRATIVE: CASE EVENT DATE: 201612
